FAERS Safety Report 4597906-X (Version None)
Quarter: 2005Q1

REPORT INFORMATION
  Report Type: 
  Country: None (occurrence: None)
  Receive Date: 20050301
  Receipt Date: 20050214
  Transmission Date: 20050727
  Serious: Yes (Hospitalization)
  Sender: FDA-Public Use
  Company Number: MK200502-0149-1

PATIENT
  Age: 46 Year
  Sex: Male

DRUGS (7)
  1. TRAMADOL HYDROCHLORIDE TABS 50MG [Suspect]
     Indication: BACK PAIN
     Dosage: 150 MG, Q DAY
  2. PSEUDOEPHEDRINE HCL 30 MG [Suspect]
     Indication: NASAL CONGESTION
     Dosage: 240 MG, Q DAY
  3. CELECOXIB [Concomitant]
  4. DIAZEPAM [Concomitant]
  5. DEXTROMETHORPAM HDROBROMIDE [Concomitant]
  6. GUAFENESIN [Concomitant]
  7. ACETAMINOPHEN [Concomitant]

REACTIONS (11)
  - ABDOMINAL TENDERNESS [None]
  - BOWEL MOVEMENT IRREGULARITY [None]
  - COLITIS ISCHAEMIC [None]
  - CONSTIPATION [None]
  - DIARRHOEA [None]
  - DIZZINESS [None]
  - HAEMATOCHEZIA [None]
  - HELICOBACTER GASTRITIS [None]
  - HYPERHIDROSIS [None]
  - NAUSEA [None]
  - RECTAL HAEMORRHAGE [None]
